FAERS Safety Report 9816893 (Version 1)
Quarter: 2014Q1

REPORT INFORMATION
  Report Type: Spontaneous
  Country: US (occurrence: US)
  Receive Date: 20140114
  Receipt Date: 20140114
  Transmission Date: 20141002
  Serious: No
  Sender: FDA-Public Use
  Company Number: US-BAUSCH-BL-2013-005651

PATIENT
  Age: 70 Year
  Sex: Male

DRUGS (2)
  1. LOTEMAX (LOTEPREDNOL ETABONATE OPHTHALMIC GEL 0.5%) [Suspect]
     Indication: DRY EYE
     Dosage: 1 DROP IN LEFT EYE, FOUR TIMES PER DAY
     Route: 047
     Dates: start: 20131010
  2. LOTEMAX (LOTEPREDNOL ETABONATE OPHTHALMIC GEL 0.5%) [Suspect]
     Dosage: 1 DROP IN RIGHT EYE, FOUR TIMES PER DAY
     Route: 047
     Dates: start: 20131010

REACTIONS (2)
  - Off label use [Not Recovered/Not Resolved]
  - Eye pain [Not Recovered/Not Resolved]
